FAERS Safety Report 10787119 (Version 1)
Quarter: 2015Q1

REPORT INFORMATION
  Report Type: Spontaneous
  Country: US (occurrence: US)
  Receive Date: 20150211
  Receipt Date: 20150211
  Transmission Date: 20150721
  Serious: No
  Sender: FDA-Public Use
  Company Number: US-GILEAD-2015-0136532

PATIENT
  Age: 65 Year
  Sex: Female
  Weight: 63.39 kg

DRUGS (3)
  1. RIBASPHERE RIBAPAK [Suspect]
     Active Substance: RIBAVIRIN
     Indication: PRODUCT USED FOR UNKNOWN INDICATION
     Route: 065
  2. SOVALDI [Suspect]
     Active Substance: SOFOSBUVIR
     Indication: PRODUCT USED FOR UNKNOWN INDICATION
     Dosage: UNK
     Route: 065
  3. RIBASPHERE [Suspect]
     Active Substance: RIBAVIRIN
     Indication: PRODUCT USED FOR UNKNOWN INDICATION
     Route: 065

REACTIONS (12)
  - Photosensitivity reaction [Unknown]
  - Pruritus [Unknown]
  - Anxiety [Unknown]
  - Cold sweat [Unknown]
  - Visual impairment [Unknown]
  - Fatigue [Unknown]
  - Hyperhidrosis [Unknown]
  - Memory impairment [Unknown]
  - Depression [Unknown]
  - Arthralgia [Unknown]
  - Rash [Unknown]
  - Abdominal discomfort [Unknown]
